FAERS Safety Report 4964979-1 (Version None)
Quarter: 2006Q2

REPORT INFORMATION
  Report Type: 
  Country: None (occurrence: None)
  Receive Date: 20060406
  Receipt Date: 20060322
  Transmission Date: 20061013
  Serious: Yes (Hospitalization)
  Sender: FDA-Public Use
  Company Number: US-AMGEN-STX173386

PATIENT
  Sex: Female

DRUGS (1)
  1. ENBREL [Suspect]
     Indication: RHEUMATOID ARTHRITIS

REACTIONS (5)
  - CONDITION AGGRAVATED [None]
  - LARYNGOSPASM [None]
  - PROCEDURAL COMPLICATION [None]
  - URTICARIA [None]
  - VOCAL CORD THICKENING [None]
